FAERS Safety Report 9979850 (Version 2)
Quarter: 2014Q2

REPORT INFORMATION
  Report Type: Spontaneous
  Country: BE (occurrence: BE)
  Receive Date: 20140306
  Receipt Date: 20140524
  Transmission Date: 20141212
  Serious: Yes (Hospitalization, Other)
  Sender: FDA-Public Use
  Company Number: BE-AMGEN-BELSP2014016011

PATIENT
  Age: 47 Year
  Sex: Female

DRUGS (1)
  1. ENBREL [Suspect]
     Indication: PRODUCT USED FOR UNKNOWN INDICATION
     Dosage: 50 MG, WEEKLY
     Route: 058
     Dates: start: 20131211

REACTIONS (4)
  - Anaemia [Recovered/Resolved]
  - Haemorrhage [Recovered/Resolved]
  - Reproductive tract disorder [Unknown]
  - Influenza [Unknown]
